FAERS Safety Report 14562299 (Version 1)
Quarter: 2018Q1

REPORT INFORMATION
  Report Type: Report from Study
  Country: JP (occurrence: JP)
  Receive Date: 20180222
  Receipt Date: 20180222
  Transmission Date: 20180509
  Serious: Yes (Life-Threatening)
  Sender: FDA-Public Use
  Company Number: JP-ACTELION-A-CH2018-167829

PATIENT
  Age: 67 Year
  Sex: Female

DRUGS (8)
  1. OPSUMIT [Suspect]
     Active Substance: MACITENTAN
     Indication: PULMONARY ARTERIAL HYPERTENSION
     Dosage: 10 MG, BID
     Route: 048
     Dates: start: 20170210
  2. CINAL [Concomitant]
     Active Substance: ASCORBIC ACID\CALCIUM PANTOTHENATE
  3. URSO [Concomitant]
     Active Substance: URSODIOL
  4. REVATIO [Concomitant]
     Active Substance: SILDENAFIL CITRATE
  5. METHYCOBAL [Concomitant]
     Active Substance: METHYLCOBALAMIN
  6. CARELOAD [Suspect]
     Active Substance: BERAPROST SODIUM
     Indication: PRODUCT USED FOR UNKNOWN INDICATION
     Dosage: 120 ?G, QD
     Route: 048
     Dates: start: 20131101
  7. JUVELA N [Concomitant]
     Active Substance: TOCOPHERYL NICOTINATE, D-.ALPHA.
  8. MUCOSTA [Concomitant]
     Active Substance: REBAMIPIDE

REACTIONS (2)
  - Anaemia [Recovering/Resolving]
  - Faeces discoloured [Recovering/Resolving]

NARRATIVE: CASE EVENT DATE: 201703
